FAERS Safety Report 13061011 (Version 4)
Quarter: 2017Q2

REPORT INFORMATION
  Report Type: Spontaneous
  Country: FR (occurrence: FR)
  Receive Date: 20161226
  Receipt Date: 20170519
  Transmission Date: 20170830
  Serious: Yes (Hospitalization)
  Sender: FDA-Public Use
  Company Number: FR-ROCHE-1871505

PATIENT
  Age: 31 Year
  Sex: Male

DRUGS (5)
  1. VALIUM [Suspect]
     Active Substance: DIAZEPAM
     Indication: GENERALISED ANXIETY DISORDER
     Dosage: 5MG SCORED TABLET
     Route: 048
     Dates: start: 20161122, end: 20161206
  2. PAROXETINE ARROW [Suspect]
     Active Substance: PAROXETINE
     Indication: GENERALISED ANXIETY DISORDER
     Route: 048
     Dates: start: 20161123, end: 20161125
  3. LOXAPAC [Suspect]
     Active Substance: LOXAPINE SUCCINATE
     Indication: GENERALISED ANXIETY DISORDER
     Dosage: 20 TO 40 DROPS PER DAY
     Route: 048
     Dates: start: 20161122, end: 20161206
  4. TERCIAN [Suspect]
     Active Substance: CYAMEMAZINE
     Indication: GENERALISED ANXIETY DISORDER
     Dosage: 40 MG/ML?30 TO 50 DROPS PER DAY
     Route: 048
     Dates: start: 20161125, end: 20161206
  5. DEPAKOTE [Suspect]
     Active Substance: DIVALPROEX SODIUM
     Indication: GENERALISED ANXIETY DISORDER
     Route: 048
     Dates: start: 20161125, end: 20161206

REACTIONS (2)
  - Toxic skin eruption [Recovered/Resolved]
  - Hepatocellular injury [Recovered/Resolved]

NARRATIVE: CASE EVENT DATE: 20161206
